FAERS Safety Report 14380359 (Version 1)
Quarter: 2018Q1

REPORT INFORMATION
  Report Type: Report from Study
  Country: US (occurrence: US)
  Receive Date: 20180112
  Receipt Date: 20180112
  Transmission Date: 20180509
  Serious: Yes (Hospitalization)
  Sender: FDA-Public Use
  Company Number: US-JNJFOC-20180112726

PATIENT
  Age: 71 Year
  Sex: Male

DRUGS (1)
  1. IMBRUVICA [Suspect]
     Active Substance: IBRUTINIB
     Indication: CHRONIC LYMPHOCYTIC LEUKAEMIA
     Route: 048
     Dates: start: 20140724

REACTIONS (5)
  - Sputum culture positive [Unknown]
  - Chest pain [Unknown]
  - Pulmonary oedema [Unknown]
  - Haemoptysis [Unknown]
  - Hypotension [Unknown]

NARRATIVE: CASE EVENT DATE: 20171130
